FAERS Safety Report 6804719-4 (Version None)
Quarter: 2010Q2

REPORT INFORMATION
  Report Type: 
  Country: None (occurrence: None)
  Receive Date: 20100628
  Receipt Date: 20070430
  Transmission Date: 20101027
  Serious: No
  Sender: FDA-Public Use
  Company Number: US-PFIZER INC-2007035580

PATIENT
  Sex: Female
  Weight: 99.79 kg

DRUGS (12)
  1. XALATAN [Suspect]
     Indication: GLAUCOMA
     Route: 031
     Dates: start: 20020101
  2. LUMIGAN [Suspect]
     Indication: GLAUCOMA
  3. TIMOLOL MALEATE [Concomitant]
  4. NORVASC [Concomitant]
  5. CAPITROL [Concomitant]
  6. WELLBUTRIN [Concomitant]
  7. GENERAL NUTRIENTS/HERBAL NOS [Concomitant]
  8. ALL OTHER THERAPEUTIC PRODUCTS [Concomitant]
  9. VITAMINS [Concomitant]
  10. CALCIUM CARBONATE [Concomitant]
  11. MAGNESIUM [Concomitant]
  12. RITALIN [Concomitant]

REACTIONS (5)
  - ERYTHEMA [None]
  - ERYTHEMA OF EYELID [None]
  - EYE PAIN [None]
  - HYPERSENSITIVITY [None]
  - SNEEZING [None]
